FAERS Safety Report 8114811-2 (Version None)
Quarter: 2012Q1

REPORT INFORMATION
  Report Type: 
  Country: None (occurrence: None)
  Receive Date: 20120206
  Receipt Date: 20120131
  Transmission Date: 20120608
  Serious: Yes (Death)
  Sender: FDA-Public Use
  Company Number: US-CELGENEUS-163-21880-12013267

PATIENT
  Sex: Male

DRUGS (12)
  1. ACYCLOVIR [Concomitant]
     Dosage: 200 MILLIGRAM
     Route: 048
  2. NEXIUM [Concomitant]
     Dosage: 40 MILLIGRAM
     Route: 048
  3. ALLOPURINOL [Concomitant]
     Dosage: 300 MILLIGRAM
     Route: 048
  4. LORTAB [Concomitant]
     Dosage: 5 MILLIGRAM
     Route: 048
  5. LOVENOX [Concomitant]
     Dosage: 120/0.8
     Route: 065
  6. MEGACE ES [Concomitant]
     Route: 048
  7. STOOL SOFTENER [Concomitant]
     Dosage: 100-30
     Route: 048
  8. REVLIMID [Suspect]
     Indication: MULTIPLE MYELOMA
     Dosage: 25 MILLIGRAM
     Route: 048
     Dates: start: 20111001
  9. BACTRIM DS [Concomitant]
     Dosage: 180-160
     Route: 048
  10. DEXAMETHASONE [Concomitant]
     Dosage: .5 MILLIGRAM
     Route: 048
  11. REVLIMID [Suspect]
     Dosage: 10 MILLIGRAM
     Route: 048
     Dates: start: 20111201
  12. PHENERGAN [Concomitant]
     Dosage: 12.5 MILLIGRAM
     Route: 065

REACTIONS (1)
  - DEATH [None]
